FAERS Safety Report 24034486 (Version 1)
Quarter: 2024Q3

REPORT INFORMATION
  Report Type: Report from Study
  Country: CA (occurrence: CA)
  Receive Date: 20240701
  Receipt Date: 20240701
  Transmission Date: 20241016
  Serious: Yes (Other)
  Sender: APOTEX
  Company Number: CA-APOTEX-2024AP007539

PATIENT
  Sex: Female

DRUGS (2)
  1. POMALIDOMIDE [Suspect]
     Active Substance: POMALIDOMIDE
     Indication: Plasma cell myeloma refractory
     Dosage: 1 MILLIGRAM, QD
     Route: 048
     Dates: start: 20231208
  2. POMALIDOMIDE [Suspect]
     Active Substance: POMALIDOMIDE
     Indication: Amyloidosis

REACTIONS (4)
  - Cardiac failure [Unknown]
  - Dyspnoea [Unknown]
  - Condition aggravated [Unknown]
  - Off label use [Unknown]
